FAERS Safety Report 6657732-4 (Version None)
Quarter: 2010Q1

REPORT INFORMATION
  Report Type: 
  Country: None (occurrence: None)
  Receive Date: 20100319
  Receipt Date: 20090512
  Transmission Date: 20100710
  Serious: Yes (Other)
  Sender: FDA-Public Use
  Company Number: 2007SP001966

PATIENT
  Age: 65 Year
  Sex: Female

DRUGS (9)
  1. PEG-INTRON [Suspect]
     Indication: HEPATITIS C
     Dates: start: 20040701, end: 20050228
  2. RIBAVIRIN [Suspect]
     Indication: HEPATITIS C
     Dosage: ; PO
     Route: 048
     Dates: start: 20040701, end: 20050620
  3. EPOGEN [Suspect]
     Indication: HEPATITIS C
     Dosage: 40000 IU;BIW;SC
     Route: 058
     Dates: start: 20040701, end: 20050622
  4. BENAZEPRIL HYDROCHLORIDE [Concomitant]
  5. .. [Concomitant]
  6. PIOGLITAZONE [Concomitant]
  7. OMEPRAZOLE [Concomitant]
  8. GABAPENTIN [Concomitant]
  9. NORTRIPTYLINE HCL [Concomitant]

REACTIONS (3)
  - APLASIA PURE RED CELL [None]
  - NON-NEUTRALISING ANTIBODIES POSITIVE [None]
  - THROMBOCYTOPENIA [None]
